FAERS Safety Report 7457837-4 (Version None)
Quarter: 2011Q2

REPORT INFORMATION
  Report Type: 
  Country: None (occurrence: None)
  Receive Date: 20110504
  Receipt Date: 20110427
  Transmission Date: 20111010
  Serious: Yes (Hospitalization)
  Sender: FDA-Public Use
  Company Number: CA-PFIZER INC-CA-WYE-H17363810

PATIENT
  Age: 10 Year
  Sex: Female
  Weight: 43 kg

DRUGS (10)
  1. ONDANSETRON [Concomitant]
     Indication: NAUSEA
  2. DIMENHYDRINATE [Concomitant]
     Dosage: 40 MG, 4X/DAY
     Route: 042
     Dates: start: 20091027
  3. ONDANSETRON [Concomitant]
     Indication: VOMITING
     Dosage: 6 MG, 3X/DAY
     Route: 042
     Dates: start: 20091027
  4. METHOTREXATE SODIUM [Suspect]
     Dosage: 6400 MG, SINGLE
     Route: 042
     Dates: start: 20091027
  5. PANTO [Suspect]
     Indication: GASTROOESOPHAGEAL REFLUX DISEASE
     Dosage: 40 MG, 1X/DAY
     Route: 042
     Dates: start: 20091027, end: 20091101
  6. CODEINE [Concomitant]
     Dosage: 180 MG (30MG, 1 IN 4 HR)
     Route: 048
     Dates: start: 20091027
  7. GLEEVEC [Concomitant]
     Dosage: 400 MG
     Route: 048
  8. FLUCONAZOLE [Concomitant]
     Dosage: 100 MG
     Route: 048
  9. DEXAMETHASONE [Concomitant]
     Dosage: 4 MG, 3X/DAY
     Route: 042
     Dates: start: 20091027
  10. LEUCOVORIN CALCIUM [Concomitant]
     Dosage: 160 MG (20MG, 1 IN 3HR)
     Route: 042
     Dates: start: 20091029, end: 20091106

REACTIONS (1)
  - DRUG CLEARANCE DECREASED [None]
